FAERS Safety Report 4558688-0 (Version None)
Quarter: 2005Q1

REPORT INFORMATION
  Report Type: 
  Country: None (occurrence: None)
  Receive Date: 20050119
  Receipt Date: 20050108
  Transmission Date: 20050727
  Serious: Yes (Hospitalization, Other)
  Sender: FDA-Public Use
  Company Number: 2005-01-0562

PATIENT
  Age: 53 Year
  Sex: Male
  Weight: 65.7716 kg

DRUGS (12)
  1. CROMOLYN SODIUM [Suspect]
  2. TAO [Suspect]
     Indication: ASTHMA
     Dosage: 250MG/DAY ORAL
     Route: 048
     Dates: start: 19930101, end: 20040101
  3. TAO [Suspect]
     Indication: ASTHMA
     Dosage: 250MG/DAY ORAL
     Route: 048
     Dates: start: 19850101
  4. PREDNISONE [Suspect]
     Indication: ASTHMA
     Dosage: ORAL
     Route: 048
     Dates: start: 19850101, end: 19930101
  5. METHYLPREDNISOLONE [Suspect]
     Indication: ASTHMA
     Dosage: SEE IMAGE, ORAL
     Route: 048
     Dates: start: 19930101
  6. ERYTHROMYCIN [Suspect]
     Indication: ASTHMA
  7. THEO-DUR [Suspect]
     Dosage: 400 MG/DAY
  8. ADVAIR (SALMETEROL/FLUTICASONE) [Concomitant]
  9. SEREVENT [Concomitant]
  10. COMBIVENT [Concomitant]
  11. THEO-24 [Concomitant]
  12. MOMTELUKAST [Concomitant]

REACTIONS (5)
  - ASTHMA [None]
  - CONDITION AGGRAVATED [None]
  - DRUG INEFFECTIVE [None]
  - SINUS POLYP [None]
  - SINUSITIS [None]
